FAERS Safety Report 20605672 (Version 1)
Quarter: 2022Q1

REPORT INFORMATION
  Report Type: Report from Study
  Country: US (occurrence: None)
  Receive Date: 20220317
  Receipt Date: 20220317
  Transmission Date: 20220424
  Serious: Yes (Hospitalization)
  Sender: FDA-Public Use
  Company Number: US-ROCHE-1050468

PATIENT
  Age: 60 Year
  Sex: Female
  Weight: 82.06 kg

DRUGS (4)
  1. BEVACIZUMAB [Suspect]
     Active Substance: BEVACIZUMAB
     Indication: Ovarian epithelial cancer
     Dosage: 15 MG/KG IV OVER 30-90 MINUTES ON DAY 1 OF CYCLES 2 PLUS?LAST ADMINISTRATION DATE: 14/NOV/2011
     Route: 042
     Dates: start: 20111114
  2. CARBOPLATIN [Suspect]
     Active Substance: CARBOPLATIN
     Indication: Ovarian epithelial cancer
     Dosage: AUC 6 ON DAY 1(CYCLES 1-6)
     Route: 042
     Dates: start: 20111114
  3. DOCETAXEL [Suspect]
     Active Substance: DOCETAXEL
     Indication: Ovarian epithelial cancer
     Route: 042
     Dates: start: 20111114
  4. PACLITAXEL [Suspect]
     Active Substance: PACLITAXEL
     Indication: Ovarian epithelial cancer
     Dosage: 80 MG/M2 IV OVER 1 HR ON DAYS 1, 8 + 15 (CYCLES 1-6)
     Route: 042

REACTIONS (2)
  - Anaemia [Unknown]
  - Febrile neutropenia [Recovered/Resolved]

NARRATIVE: CASE EVENT DATE: 20111122
